FAERS Safety Report 11806814 (Version 1)
Quarter: 2015Q4

REPORT INFORMATION
  Report Type: Spontaneous
  Country: US (occurrence: US)
  Receive Date: 20151207
  Receipt Date: 20151207
  Transmission Date: 20160305
  Serious: No
  Sender: FDA-Public Use
  Company Number: US-ENDO PHARMACEUTICALS INC.-2015-002902

PATIENT
  Age: 35 Year
  Sex: Male

DRUGS (3)
  1. TESTIM [Suspect]
     Active Substance: TESTOSTERONE
     Indication: HYPOGONADISM
     Route: 065
     Dates: start: 20150916
  2. TESTIM [Suspect]
     Active Substance: TESTOSTERONE
     Route: 065
     Dates: start: 201506, end: 20150916
  3. TESTIM [Suspect]
     Active Substance: TESTOSTERONE
     Route: 065
     Dates: start: 201503, end: 201506

REACTIONS (2)
  - Haemoglobin increased [Unknown]
  - Haematocrit increased [Unknown]

NARRATIVE: CASE EVENT DATE: 201509
